FAERS Safety Report 11532457 (Version 2)
Quarter: 2015Q4

REPORT INFORMATION
  Report Type: Spontaneous
  Country: DE (occurrence: DE)
  Receive Date: 20150921
  Receipt Date: 20151222
  Transmission Date: 20160304
  Serious: Yes (Death)
  Sender: FDA-Public Use
  Company Number: DE-UNITED THERAPEUTICS-UNT-2015-011378

PATIENT
  Sex: Female

DRUGS (1)
  1. REMODULIN [Suspect]
     Active Substance: TREPROSTINIL
     Indication: PRODUCT USED FOR UNKNOWN INDICATION
     Dosage: 1.67 UNK, UNK
     Route: 041
     Dates: start: 20100730, end: 20140130

REACTIONS (2)
  - Product use issue [Unknown]
  - Disease progression [Fatal]

NARRATIVE: CASE EVENT DATE: 20100730
